FAERS Safety Report 7020403-9 (Version None)
Quarter: 2010Q3

REPORT INFORMATION
  Report Type: 
  Country: None (occurrence: None)
  Receive Date: 20100929
  Receipt Date: 20100921
  Transmission Date: 20110219
  Serious: Yes (Hospitalization, Other)
  Sender: FDA-Public Use
  Company Number: AU-BAYER-201038150GPV

PATIENT
  Age: 42 Year
  Sex: Female

DRUGS (1)
  1. MIRENA [Suspect]
     Indication: MENORRHAGIA
     Route: 015
     Dates: start: 20100701

REACTIONS (7)
  - ARTERIOVENOUS MALFORMATION [None]
  - BENIGN HYDATIDIFORM MOLE [None]
  - DEVICE RELATED INFECTION [None]
  - GENITAL DISCHARGE [None]
  - UTERINE LEIOMYOMA [None]
  - UTERINE MASS [None]
  - UTERINE POLYP [None]
